FAERS Safety Report 9819723 (Version 2)
Quarter: 2014Q1

REPORT INFORMATION
  Report Type: Report from Study
  Country: US (occurrence: US)
  Receive Date: 20140116
  Receipt Date: 20140117
  Transmission Date: 20141002
  Serious: Yes (Other)
  Sender: FDA-Public Use
  Company Number: US-ROCHE-1332380

PATIENT
  Sex: Male

DRUGS (13)
  1. LUCENTIS [Suspect]
     Indication: PRODUCT USED FOR UNKNOWN INDICATION
     Route: 065
  2. ALLOPURINOL [Concomitant]
     Route: 065
  3. ZOLPIDEM [Concomitant]
  4. SIMVASTATIN [Concomitant]
  5. KAYEXALATE [Concomitant]
  6. CLONIDINE HCL [Concomitant]
  7. METOPROLOL TARTRATE [Concomitant]
  8. NIFEDIPINE ER [Concomitant]
  9. PRAZOSIN [Concomitant]
  10. SERTRALINE [Concomitant]
  11. GLIPIZIDE ER [Concomitant]
  12. LASIX [Concomitant]
  13. ERGOCALCIFEROL [Concomitant]

REACTIONS (2)
  - Cardiac operation [Unknown]
  - Malaise [Not Recovered/Not Resolved]
